FAERS Safety Report 9265416 (Version 2)
Quarter: 2013Q2

REPORT INFORMATION
  Report Type: Spontaneous
  Country: CN (occurrence: CN)
  Receive Date: 20130501
  Receipt Date: 20130513
  Transmission Date: 20140414
  Serious: Yes (Hospitalization)
  Sender: FDA-Public Use
  Company Number: CN-NAPPMUNDI-GBR-2013-0013308

PATIENT
  Age: 70 Year
  Sex: Male

DRUGS (6)
  1. OXYCODONE HCL PR TABLET [Suspect]
     Indication: LUNG NEOPLASM MALIGNANT
     Dosage: 30 MG, Q12H
     Route: 048
  2. OXYCODONE HCL PR TABLET [Suspect]
     Indication: METASTASES TO BONE
  3. OXYCODONE AND ACETAMINOPHEN [Concomitant]
     Indication: LUNG NEOPLASM MALIGNANT
     Dosage: 1 G, Q8H
     Route: 048
  4. OXYCODONE AND ACETAMINOPHEN [Concomitant]
     Indication: METASTASES TO BONE
  5. MORPHINE HYDROCHLORIDE [Concomitant]
     Indication: LUNG NEOPLASM MALIGNANT
     Dosage: 30 MG, Q12H
     Route: 048
  6. MORPHINE HYDROCHLORIDE [Concomitant]
     Indication: METASTASES TO BONE

REACTIONS (1)
  - Heart rate increased [Recovered/Resolved]
